FAERS Safety Report 9719716 (Version 4)
Quarter: 2014Q1

REPORT INFORMATION
  Report Type: Report from Study
  Country: FR (occurrence: FR)
  Receive Date: 20131128
  Receipt Date: 20140327
  Transmission Date: 20141002
  Serious: Yes (Hospitalization)
  Sender: FDA-Public Use
  Company Number: FR-ROCHE-1300399

PATIENT
  Age: 71 Year
  Sex: Male
  Weight: 196 kg

DRUGS (15)
  1. RITUXIMAB [Suspect]
     Indication: CHRONIC LYMPHOCYTIC LEUKAEMIA
     Route: 041
     Dates: start: 20131024, end: 20131026
  2. FLUDARABINE [Suspect]
     Indication: CHRONIC LYMPHOCYTIC LEUKAEMIA
     Route: 048
     Dates: start: 20131024, end: 20131026
  3. ENDOXAN [Suspect]
     Indication: CHRONIC LYMPHOCYTIC LEUKAEMIA
     Route: 048
     Dates: start: 20131024, end: 20131026
  4. BACTRIM FORTE [Suspect]
     Indication: PRODUCT USED FOR UNKNOWN INDICATION
     Route: 065
     Dates: start: 20130924, end: 20131029
  5. ZELITREX [Suspect]
     Indication: BENIGN PROSTATIC HYPERPLASIA
     Route: 048
     Dates: start: 20130924, end: 20131029
  6. XATRAL [Suspect]
     Indication: PRODUCT USED FOR UNKNOWN INDICATION
     Route: 048
     Dates: start: 20131005, end: 20131101
  7. INNOHEP [Concomitant]
     Route: 065
     Dates: start: 201309
  8. INEXIUM [Concomitant]
     Route: 065
  9. PRAVASTATIN [Concomitant]
     Route: 065
  10. FLECAINE [Concomitant]
     Route: 065
  11. KARDEGIC [Concomitant]
     Route: 065
  12. METFORMIN [Concomitant]
     Route: 065
  13. GRANOCYTE 34 [Concomitant]
     Route: 065
     Dates: start: 20131030, end: 20131104
  14. INNOHEP [Concomitant]
     Route: 065
  15. DUPHALAC [Concomitant]

REACTIONS (1)
  - Drug reaction with eosinophilia and systemic symptoms [Recovered/Resolved]
